FAERS Safety Report 11302799 (Version 3)
Quarter: 2015Q3

REPORT INFORMATION
  Report Type: Spontaneous
  Country: US (occurrence: US)
  Receive Date: 20150723
  Receipt Date: 20150724
  Transmission Date: 20151125
  Serious: No
  Sender: FDA-Public Use
  Company Number: US-MERZ NORTH AMERICA, INC.-15MRZ-00375

PATIENT
  Age: 54 Year
  Sex: Male

DRUGS (1)
  1. NAFTIN [Suspect]
     Active Substance: NAFTIFINE HYDROCHLORIDE
     Indication: TINEA PEDIS
     Route: 061
     Dates: start: 20150608, end: 2015

REACTIONS (7)
  - Application site reaction [Recovered/Resolved]
  - Application site erosion [Recovered/Resolved]
  - Skin exfoliation [Recovered/Resolved]
  - Application site dryness [Recovered/Resolved]
  - Drug ineffective [Recovered/Resolved]
  - Application site pruritus [Recovered/Resolved]
  - Application site erythema [Recovered/Resolved]

NARRATIVE: CASE EVENT DATE: 20150624
